FAERS Safety Report 23231760 (Version 1)
Quarter: 2023Q4

REPORT INFORMATION
  Report Type: Report from Study
  Country: US (occurrence: US)
  Receive Date: 20231127
  Receipt Date: 20231127
  Transmission Date: 20240109
  Serious: Yes (Other)
  Sender: FDA-Public Use
  Company Number: US-BAYER-2023A119267

PATIENT
  Age: 62 Year
  Sex: Male

DRUGS (4)
  1. STIVARGA [Suspect]
     Active Substance: REGORAFENIB
     Indication: Colon cancer
     Dosage: 80 MG, QD
     Dates: start: 20230819, end: 20230825
  2. STIVARGA [Suspect]
     Active Substance: REGORAFENIB
     Indication: Colon cancer
     Dosage: 120 MG, QD
     Dates: start: 20230826, end: 20230901
  3. STIVARGA [Suspect]
     Active Substance: REGORAFENIB
     Indication: Colon cancer
     Dosage: 120 MG, QD
     Dates: start: 20230904
  4. STIVARGA [Suspect]
     Active Substance: REGORAFENIB
     Indication: Colon cancer
     Dosage: 160 MG, QD
     Dates: end: 202309

REACTIONS (11)
  - Mobility decreased [Recovering/Resolving]
  - Fatigue [Not Recovered/Not Resolved]
  - Off label use [None]
  - Pruritus [Unknown]
  - Diarrhoea [Unknown]
  - Vomiting [Unknown]
  - Feeling hot [Unknown]
  - Pain [Unknown]
  - Nausea [Unknown]
  - Headache [Recovering/Resolving]
  - Pain [Recovering/Resolving]

NARRATIVE: CASE EVENT DATE: 20230819
